FAERS Safety Report 13643573 (Version 2)
Quarter: 2017Q3

REPORT INFORMATION
  Report Type: Spontaneous
  Country: FR (occurrence: FR)
  Receive Date: 20170612
  Receipt Date: 20170724
  Transmission Date: 20171127
  Serious: Yes (Life-Threatening)
  Sender: FDA-Public Use
  Company Number: PHHY2017FR084178

PATIENT
  Age: 72 Year
  Sex: Female

DRUGS (2)
  1. ZOPHREN [Suspect]
     Active Substance: ONDANSETRON
     Indication: PROPHYLAXIS OF NAUSEA AND VOMITING
     Dosage: 8 MG, ONCE/SINGLE
     Route: 042
     Dates: start: 20170518, end: 20170518
  2. CARBOPLATIN/HOSPIRA [Suspect]
     Active Substance: CARBOPLATIN
     Indication: OVARIAN CANCER
     Dosage: 80.6 MG, ONCE/SINGLE
     Route: 042
     Dates: start: 20170518, end: 20170518

REACTIONS (4)
  - Hypertensive crisis [Recovered/Resolved]
  - Respiratory failure [Recovered/Resolved]
  - Bronchospasm [Recovered/Resolved]
  - Disturbance in attention [Recovered/Resolved]

NARRATIVE: CASE EVENT DATE: 20170518
